FAERS Safety Report 6882646-4 (Version None)
Quarter: 2010Q3

REPORT INFORMATION
  Report Type: 
  Country: None (occurrence: None)
  Receive Date: 20100729
  Receipt Date: 20100720
  Transmission Date: 20110219
  Serious: Yes (Hospitalization)
  Sender: FDA-Public Use
  Company Number: GB-ROCHE-709044

PATIENT
  Sex: Female
  Weight: 91.9 kg

DRUGS (6)
  1. BEVACIZUMAB [Suspect]
     Dosage: FORM: VIAL, DOSE: 15 MG/KG, PERMANENTLY DISCONTINUED, LAST DOSE PRIOR TO SAE ON 25.05.2010
     Route: 042
     Dates: start: 20100413, end: 20100709
  2. TRASTUZUMAB [Suspect]
     Dosage: FORM: VIAL, DOSE: 6 MG/KG, PERMANENTLY DISCONTINUED, LAST DOSE PRIOR TO SAE ON 25.05.2010
     Route: 042
     Dates: start: 20100413, end: 20100709
  3. DOCETAXEL [Suspect]
     Dosage: FORM: VIAL, DOSE: 60.5 MG/M2, TREATMENT DELAYED, LAST DOSE PRIOR TO SAE ON 25 MAY 2010
     Route: 042
     Dates: start: 20100413
  4. DOCETAXEL [Suspect]
     Dosage: DOSE: 60.5 MG/M2
     Route: 042
     Dates: start: 20100712
  5. CARBOPLATIN [Suspect]
     Dosage: FORM: VIAL, DOSE: 5 AUC, TREATMENT DELAYED, LAST DOSE PRIOR TO SAE ON 25 MAY 2010
     Route: 042
     Dates: start: 20100413
  6. CARBOPLATIN [Suspect]
     Dosage: DOSE: 5 AUC
     Route: 042
     Dates: start: 20100712

REACTIONS (1)
  - SUPRAVENTRICULAR TACHYCARDIA [None]
